FAERS Safety Report 8604470-4 (Version None)
Quarter: 2012Q3

REPORT INFORMATION
  Report Type: 
  Country: None (occurrence: None)
  Receive Date: 20120820
  Receipt Date: 20120810
  Transmission Date: 20120928
  Serious: Yes (Death, Hospitalization)
  Sender: FDA-Public Use
  Company Number: MX-MPIJNJ-2012-05671

PATIENT

DRUGS (3)
  1. DEXAMETHASONE [Concomitant]
     Indication: MULTIPLE MYELOMA
  2. THALIDOMIDE [Concomitant]
     Indication: MULTIPLE MYELOMA
  3. VELCADE [Suspect]
     Indication: MULTIPLE MYELOMA
     Dosage: UNK
     Route: 065
     Dates: start: 20120720, end: 20120730

REACTIONS (3)
  - RENAL TUBULAR NECROSIS [None]
  - RENAL FAILURE [None]
  - PULMONARY OEDEMA [None]
